FAERS Safety Report 24863441 (Version 2)
Quarter: 2025Q1

REPORT INFORMATION
  Report Type: Report from Study
  Country: US (occurrence: US)
  Receive Date: 20250120
  Receipt Date: 20250226
  Transmission Date: 20250408
  Serious: Yes (Other)
  Sender: PAREXEL
  Company Number: US-STEMLINE THERAPEUTICS, INC-2025-STML-US000130

PATIENT

DRUGS (2)
  1. ORSERDU [Suspect]
     Active Substance: ELACESTRANT
     Indication: Breast cancer female
     Dosage: 345 MG, DAILY
     Route: 048
     Dates: start: 20241221
  2. ORSERDU [Suspect]
     Active Substance: ELACESTRANT
     Dosage: 345 MG, DAILY
     Route: 048
     Dates: start: 20241221

REACTIONS (2)
  - Cataract [Unknown]
  - Asthenia [Unknown]
